FAERS Safety Report 9308387 (Version 5)
Quarter: 2013Q3

REPORT INFORMATION
  Report Type: Spontaneous
  Country: CZ (occurrence: CZ)
  Receive Date: 20130524
  Receipt Date: 20130716
  Transmission Date: 20140515
  Serious: Yes (Other)
  Sender: FDA-Public Use
  Company Number: CZ-PFIZER INC-2013126601

PATIENT
  Sex: Male

DRUGS (3)
  1. ZIPRASIDONE HCL [Suspect]
     Dosage: UNK
     Dates: start: 19960409, end: 19960702
  2. HALOPERIDOL [Suspect]
     Dosage: UNK
     Dates: start: 19960409, end: 19960702
  3. TAVOR [Suspect]
     Dosage: UNK

REACTIONS (10)
  - Schizophrenia [Unknown]
  - Social avoidant behaviour [Unknown]
  - Pituitary tumour benign [Unknown]
  - Hypersensitivity [Unknown]
  - Facial nerve disorder [Unknown]
  - Neuralgia [Unknown]
  - Dysphagia [Unknown]
  - Incontinence [Unknown]
  - Feeling abnormal [Unknown]
  - Pain [Unknown]
